FAERS Safety Report 23432132 (Version 1)
Quarter: 2024Q1

REPORT INFORMATION
  Report Type: Spontaneous
  Country: US (occurrence: None)
  Receive Date: 20240122
  Receipt Date: 20240122
  Transmission Date: 20240410
  Serious: Yes (Other)
  Sender: FDA-Public Use
  Company Number: None

PATIENT
  Age: 57 Year
  Sex: Female
  Weight: 53.1 kg

DRUGS (1)
  1. NEOMYCIN AND POLYMYXIN B SULFATES AND HYDROCORTISONE [Suspect]
     Active Substance: HYDROCORTISONE\NEOMYCIN SULFATE\POLYMYXIN B SULFATE
     Indication: Ear infection
     Dosage: OTHER QUANTITY : 4 DROP(S);?FREQUENCY : 4 TIMES A DAY;?
     Route: 001
     Dates: start: 20240113, end: 20240119

REACTIONS (5)
  - Deafness [None]
  - Tinnitus [None]
  - Diarrhoea [None]
  - Vomiting [None]
  - Ototoxicity [None]

NARRATIVE: CASE EVENT DATE: 20240113
